FAERS Safety Report 10225461 (Version 1)
Quarter: 2014Q2

REPORT INFORMATION
  Report Type: Spontaneous
  Country: US (occurrence: US)
  Receive Date: 20140609
  Receipt Date: 20140609
  Transmission Date: 20141212
  Serious: Yes (Other)
  Sender: FDA-Public Use
  Company Number: US-ASTELLAS-2014US002723

PATIENT
  Age: 47 Year
  Sex: Male
  Weight: 100 kg

DRUGS (3)
  1. PROGRAF [Suspect]
     Indication: RENAL TRANSPLANT
     Route: 048
     Dates: start: 2009
  2. CELLCEPT                           /01275104/ [Concomitant]
     Indication: PRODUCT USED FOR UNKNOWN INDICATION
     Route: 065
  3. PREDNISONE [Concomitant]
     Indication: PRODUCT USED FOR UNKNOWN INDICATION
     Route: 065

REACTIONS (5)
  - Lip infection [Unknown]
  - Oral papilloma [Unknown]
  - Rash [Unknown]
  - Pain in extremity [Unknown]
  - Skin infection [Unknown]
